FAERS Safety Report 6790398-1 (Version None)
Quarter: 2010Q2

REPORT INFORMATION
  Report Type: 
  Country: None (occurrence: None)
  Receive Date: 20100624
  Receipt Date: 20100615
  Transmission Date: 20101027
  Serious: Yes (Life-Threatening, Other)
  Sender: FDA-Public Use
  Company Number: FR-SOLVAY-00210003799

PATIENT
  Age: 27798 Day
  Sex: Male

DRUGS (4)
  1. TEMERIT [Concomitant]
     Indication: DRUG USE FOR UNKNOWN INDICATION
     Dosage: DAILY DOSE:  UNKNOWN
     Route: 065
  2. CRESTOR [Concomitant]
     Indication: DRUG USE FOR UNKNOWN INDICATION
     Dosage: DAILY DOSE:  UNKNOWN
     Route: 065
  3. PLAVIX [Suspect]
     Indication: DRUG USE FOR UNKNOWN INDICATION
     Dosage: DAILY DOSE: 75 MILLIGRAM(S)
     Route: 048
     Dates: start: 20100416, end: 20100520
  4. COVERSYL NOS TABLET [Suspect]
     Indication: DRUG USE FOR UNKNOWN INDICATION
     Dosage: DAILY DOSE: 1 DOSAGE FORM
     Route: 048
     Dates: start: 20100416, end: 20100520

REACTIONS (3)
  - AGRANULOCYTOSIS [None]
  - LOSS OF CONSCIOUSNESS [None]
  - NECK PAIN [None]
